FAERS Safety Report 6344133-1 (Version None)
Quarter: 2009Q3

REPORT INFORMATION
  Report Type: 
  Country: None (occurrence: None)
  Receive Date: 20090908
  Receipt Date: 20090903
  Transmission Date: 20100115
  Serious: Yes (Death, Other)
  Sender: FDA-Public Use
  Company Number: FR-BRISTOL-MYERS SQUIBB COMPANY-14767974

PATIENT
  Age: 68 Year
  Sex: Female

DRUGS (11)
  1. GLUCOPHAGE [Suspect]
     Route: 048
     Dates: end: 20090818
  2. HOLOXAN PWDR INJ [Suspect]
     Dosage: HOLOXAN 1000MG
     Route: 042
     Dates: start: 20090810, end: 20090814
  3. ETOPOSIDE [Suspect]
     Dosage: 2 DAYS
     Route: 042
     Dates: start: 20090810, end: 20090812
  4. UROMITEXAN [Suspect]
     Route: 042
     Dates: start: 20090810, end: 20090814
  5. ARACYTINE [Suspect]
     Dosage: 2DAYS
     Route: 042
     Dates: start: 20090810, end: 20090812
  6. METHOTREXATE [Suspect]
     Route: 042
     Dates: start: 20090814, end: 20090814
  7. LASIX [Suspect]
     Route: 042
     Dates: start: 20090806, end: 20090818
  8. AVANDIA [Suspect]
     Route: 048
     Dates: end: 20090818
  9. DRIPTANE [Suspect]
     Dosage: 5MG TABLET
     Route: 048
     Dates: end: 20090819
  10. KEPPRA [Suspect]
     Route: 048
     Dates: end: 20090817
  11. CALCIUM FOLINATE [Suspect]
     Route: 048
     Dates: end: 20090819

REACTIONS (5)
  - CONFUSIONAL STATE [None]
  - LEUKOPENIA [None]
  - RENAL FAILURE ACUTE [None]
  - SEPSIS [None]
  - SOMNOLENCE [None]
